FAERS Safety Report 9585017 (Version 1)
Quarter: 2013Q4

REPORT INFORMATION
  Report Type: Spontaneous
  Country: US (occurrence: US)
  Receive Date: 20131002
  Receipt Date: 20131002
  Transmission Date: 20140711
  Serious: No
  Sender: FDA-Public Use
  Company Number: US-AMGEN-USASP2013056606

PATIENT
  Age: 29 Year
  Sex: Male
  Weight: 92 kg

DRUGS (5)
  1. ENBREL [Suspect]
     Indication: PSORIASIS
     Dosage: 50 MG, QWK
     Route: 058
  2. CLARITIN                           /00413701/ [Concomitant]
     Dosage: 10 MG, UNK
     Route: 048
  3. TRILIPIX [Concomitant]
     Dosage: 135 MG, UNK
     Route: 048
  4. SINGULAIR [Concomitant]
     Dosage: 10 MG, UNK
     Route: 048
  5. NEXIUM                             /01479302/ [Concomitant]
     Dosage: 40 MG, UNK
     Route: 048

REACTIONS (1)
  - Drug ineffective [Unknown]
